FAERS Safety Report 9388945 (Version 2)
Quarter: 2013Q3

REPORT INFORMATION
  Report Type: Report from Study
  Country: FR (occurrence: FR)
  Receive Date: 20130708
  Receipt Date: 20130913
  Transmission Date: 20140515
  Serious: Yes (Other)
  Sender: FDA-Public Use
  Company Number: PHHY2012FR128774

PATIENT
  Age: 53 Year
  Sex: Male

DRUGS (3)
  1. MYCOPHENOLIC ACID [Suspect]
     Indication: RENAL TRANSPLANT
     Dosage: UNK
     Dates: start: 20100408
  2. NEORAL [Suspect]
     Indication: RENAL TRANSPLANT
     Dosage: UNK
     Dates: start: 20101030
  3. SOLUPRED [Concomitant]
     Indication: RENAL TRANSPLANT
     Dosage: UNK
     Dates: start: 20100820, end: 20110518

REACTIONS (2)
  - Pleural effusion [Unknown]
  - Effusion [Unknown]
